FAERS Safety Report 6503561-1 (Version None)
Quarter: 2009Q4

REPORT INFORMATION
  Report Type: 
  Country: None (occurrence: None)
  Receive Date: 20091217
  Receipt Date: 20091215
  Transmission Date: 20100525
  Serious: Yes (Death)
  Sender: FDA-Public Use
  Company Number: JP-SANOFI-AVENTIS-200911187JP

PATIENT
  Sex: Male

DRUGS (2)
  1. DOCETAXEL [Suspect]
     Route: 041
  2. ALL OTHER THERAPEUTIC PRODUCTS [Concomitant]
     Indication: ANTICOAGULANT THERAPY

REACTIONS (1)
  - INTERSTITIAL LUNG DISEASE [None]
